FAERS Safety Report 8211760-6 (Version None)
Quarter: 2012Q1

REPORT INFORMATION
  Report Type: 
  Country: None (occurrence: None)
  Receive Date: 20120315
  Receipt Date: 20120303
  Transmission Date: 20120608
  Serious: Yes (Hospitalization, Other)
  Sender: FDA-Public Use
  Company Number: DE-PFIZER INC-2012051151

PATIENT
  Age: 43 Year
  Sex: Female

DRUGS (7)
  1. CHLORPROTHIXENE [Suspect]
     Dosage: 150 MG, SINGLE, INGESTION NOT ASSURED
     Route: 048
     Dates: start: 20120201, end: 20120201
  2. LITHIUM CARBONATE [Suspect]
     Dosage: QUILONOM RETARD TABLET 450
     Route: 048
  3. MELPERONE HYDROCHLORIDE [Suspect]
     Dosage: 15 TABLETS, ORAL INGESTION NOT ASSURED
     Route: 048
     Dates: start: 20120201, end: 20120201
  4. IBUPROFEN TABLETS [Suspect]
     Dosage: 1200 MG, SINGLE, INGESTION NOT ASSURED
     Route: 048
     Dates: start: 20120201, end: 20120201
  5. ATARAX [Suspect]
     Dosage: 350 MG, SINGLE
     Route: 048
     Dates: start: 20120201, end: 20120201
  6. CLOPIDOGREL [Suspect]
     Dosage: 750 MG, SINGLE, NOT ASSURED
     Route: 048
     Dates: start: 20120201, end: 20120201
  7. ENOXAPARIN SODIUM [Suspect]
     Dosage: 80 MG, SINGLE
     Dates: start: 20120201, end: 20120201

REACTIONS (7)
  - SOMNOLENCE [None]
  - LIMB INJURY [None]
  - OVERDOSE [None]
  - BRADYCARDIA [None]
  - SUICIDE ATTEMPT [None]
  - BLOOD PRESSURE SYSTOLIC DECREASED [None]
  - VOMITING [None]
